FAERS Safety Report 5733209-5 (Version None)
Quarter: 2008Q2

REPORT INFORMATION
  Report Type: 
  Country: None (occurrence: None)
  Receive Date: 20080509
  Receipt Date: 20080506
  Transmission Date: 20081010
  Serious: Yes (Other)
  Sender: FDA-Public Use
  Company Number: US-ABBOTT-08P-163-0450915-00

PATIENT

DRUGS (1)
  1. CYCLOSPORINE [Suspect]
     Indication: INFLAMMATORY BOWEL DISEASE
     Dosage: NOT REPORTED

REACTIONS (1)
  - PNEUMONIA BACTERIAL [None]
